FAERS Safety Report 14475454 (Version 1)
Quarter: 2018Q1

REPORT INFORMATION
  Report Type: Spontaneous
  Country: US (occurrence: US)
  Receive Date: 20180131
  Receipt Date: 20180131
  Transmission Date: 20180509
  Serious: Yes (Other)
  Sender: FDA-Public Use
  Company Number: None

PATIENT
  Sex: Female
  Weight: 58.5 kg

DRUGS (2)
  1. TRAMADOL 50 MG TABLETS [Suspect]
     Active Substance: TRAMADOL
     Indication: KNEE ARTHROPLASTY
     Dosage: ?          QUANTITY:90 TABLET(S);OTHER ROUTE:BY MOUTH,  1 PILL?
     Route: 048
     Dates: start: 20171124, end: 20171125
  2. TRAMADOL 50 MG TABLETS [Suspect]
     Active Substance: TRAMADOL
     Indication: PROCEDURAL PAIN
     Dosage: ?          QUANTITY:90 TABLET(S);OTHER ROUTE:BY MOUTH,  1 PILL?
     Route: 048
     Dates: start: 20171124, end: 20171125

REACTIONS (5)
  - Heart rate increased [None]
  - Muscle twitching [None]
  - Vertigo [None]
  - Asthenia [None]
  - Diarrhoea [None]

NARRATIVE: CASE EVENT DATE: 20171125
